FAERS Safety Report 10268985 (Version 1)
Quarter: 2014Q2

REPORT INFORMATION
  Report Type: Report from Study
  Country: AT (occurrence: AT)
  Receive Date: 20140630
  Receipt Date: 20140630
  Transmission Date: 20141212
  Serious: Yes (Other)
  Sender: FDA-Public Use
  Company Number: AT-BAXTER-2014BAX035973

PATIENT
  Sex: 0

DRUGS (5)
  1. ENDOXAN ^BAXTER^ 1G - TROCKENSTECHAMPULLE [Suspect]
     Indication: DIFFUSE LARGE B-CELL LYMPHOMA
     Route: 065
  2. RITUXIMAB [Suspect]
     Indication: DIFFUSE LARGE B-CELL LYMPHOMA
     Route: 065
  3. DOXORUBICIN [Suspect]
     Indication: DIFFUSE LARGE B-CELL LYMPHOMA
     Route: 065
  4. VINCRISTINE [Suspect]
     Indication: DIFFUSE LARGE B-CELL LYMPHOMA
     Route: 065
  5. PREDNISONE [Suspect]
     Indication: DIFFUSE LARGE B-CELL LYMPHOMA
     Route: 065

REACTIONS (1)
  - Disease progression [Unknown]
